FAERS Safety Report 18581415 (Version 1)
Quarter: 2020Q4

REPORT INFORMATION
  Report Type: Spontaneous
  Country: SI (occurrence: SI)
  Receive Date: 20201204
  Receipt Date: 20201204
  Transmission Date: 20210114
  Serious: Yes (Hospitalization, Disabling)
  Sender: FDA-Public Use
  Company Number: SI-009507513-2012SVN000388

PATIENT
  Age: 70 Year
  Sex: Female

DRUGS (8)
  1. HELEX [Concomitant]
     Active Substance: ALPRAZOLAM
     Dosage: UNK UNK, PRN
  2. PORTALAK [Concomitant]
     Active Substance: LACTULOSE
     Dosage: UNK UNK, PRN
  3. PANTOPRAZOLE SODIUM. [Concomitant]
     Active Substance: PANTOPRAZOLE SODIUM
  4. ATORIS [Concomitant]
     Active Substance: ATORVASTATIN CALCIUM
  5. PRENESSA [Concomitant]
     Active Substance: PERINDOPRIL
  6. ANALGIN [Concomitant]
     Dosage: UNK UNK, PRN
  7. KEYTRUDA [Suspect]
     Active Substance: PEMBROLIZUMAB
     Indication: LUNG NEOPLASM MALIGNANT
     Dosage: 25 MG/ML, CONCENTRATEFOR SOLUTION FOR INFUSION
     Route: 042
     Dates: start: 20200930, end: 20201019
  8. DEXAMETHASONE. [Concomitant]
     Active Substance: DEXAMETHASONE
     Dosage: ACCORDING TO THE SCHEME

REACTIONS (2)
  - Acute kidney injury [Not Recovered/Not Resolved]
  - Hypothyroidism [Not Recovered/Not Resolved]

NARRATIVE: CASE EVENT DATE: 20201019
